FAERS Safety Report 14417750 (Version 1)
Quarter: 2018Q1

REPORT INFORMATION
  Report Type: Report from Study
  Country: NZ (occurrence: NZ)
  Receive Date: 20180122
  Receipt Date: 20180122
  Transmission Date: 20180509
  Serious: Yes (Hospitalization, Other)
  Sender: FDA-Public Use
  Company Number: NZ-MYLANLABS-2017M1077444

PATIENT
  Age: 47 Year
  Sex: Female

DRUGS (5)
  1. HALOPERIDOL. [Concomitant]
     Active Substance: HALOPERIDOL
     Indication: SCHIZOPHRENIA
     Dosage: UNK
     Route: 030
  2. LORAZEPAM. [Concomitant]
     Active Substance: LORAZEPAM
     Indication: SCHIZOPHRENIA
     Dosage: 1 MG, TID
     Route: 048
  3. CLOZAPINE. [Suspect]
     Active Substance: CLOZAPINE
     Indication: SCHIZOPHRENIA
     Dosage: 300 MG, PM
     Route: 048
     Dates: start: 20131211
  4. METFORMIN [Suspect]
     Active Substance: METFORMIN HYDROCHLORIDE
     Indication: WEIGHT INCREASED
     Dosage: UNK UNK, TID
     Route: 048
  5. PARACETAMOL [Suspect]
     Active Substance: ACETAMINOPHEN
     Indication: PRODUCT USED FOR UNKNOWN INDICATION
     Dosage: UNK

REACTIONS (32)
  - Alanine aminotransferase increased [Unknown]
  - Extensor plantar response [Unknown]
  - Miosis [Unknown]
  - Nystagmus [Unknown]
  - Electrocardiogram QT prolonged [Unknown]
  - Hyperventilation [Unknown]
  - Pallor [Unknown]
  - Laceration [Unknown]
  - Toxicity to various agents [Unknown]
  - Type 2 diabetes mellitus [Unknown]
  - Extrapyramidal disorder [Unknown]
  - Respiratory acidosis [Unknown]
  - Blood potassium decreased [Unknown]
  - Blood phosphorus decreased [Unknown]
  - Thrombosis [Unknown]
  - Lactic acidosis [Not Recovered/Not Resolved]
  - Drug level increased [Unknown]
  - Overdose [Unknown]
  - Cold sweat [Unknown]
  - Vomiting [Unknown]
  - Sepsis [Unknown]
  - Major depression [Unknown]
  - Hypothermia [Unknown]
  - Urinary incontinence [Unknown]
  - Feeling hot [Unknown]
  - Agitation [Unknown]
  - Loss of consciousness [Unknown]
  - Mental disorder [Unknown]
  - Tachycardia [Unknown]
  - PCO2 decreased [Unknown]
  - Neutrophilia [Recovered/Resolved]
  - White blood cell count increased [Recovered/Resolved]

NARRATIVE: CASE EVENT DATE: 20151120
